FAERS Safety Report 7451765-6 (Version None)
Quarter: 2011Q2

REPORT INFORMATION
  Report Type: 
  Country: None (occurrence: None)
  Receive Date: 20110502
  Receipt Date: 20100524
  Transmission Date: 20111010
  Serious: No
  Sender: FDA-Public Use
  Company Number: US-ASTRAZENECA-2010SE23787

PATIENT
  Age: 449 Month
  Sex: Male
  Weight: 99.8 kg

DRUGS (1)
  1. NEXIUM [Suspect]
     Dosage: 1-2 TIMES PER DAY
     Route: 048
     Dates: start: 20060101, end: 20100522

REACTIONS (3)
  - ABDOMINAL PAIN UPPER [None]
  - BILIARY DYSKINESIA [None]
  - HAEMATOCHEZIA [None]
